FAERS Safety Report 7118126-0 (Version None)
Quarter: 2010Q4

REPORT INFORMATION
  Report Type: 
  Country: None (occurrence: None)
  Receive Date: 20101123
  Receipt Date: 20101112
  Transmission Date: 20110411
  Serious: No
  Sender: FDA-Public Use
  Company Number: US-PFIZER INC-2010150611

PATIENT

DRUGS (2)
  1. GABAPENTIN [Suspect]
     Dosage: UNK
  2. AMITRIPTYLINE [Suspect]
     Dosage: UNK

REACTIONS (3)
  - DYSGEUSIA [None]
  - PAIN [None]
  - TREMOR [None]
